FAERS Safety Report 4830071-X (Version None)
Quarter: 2005Q4

REPORT INFORMATION
  Report Type: 
  Country: None (occurrence: None)
  Receive Date: 20051114
  Receipt Date: 20051102
  Transmission Date: 20060501
  Serious: Yes (Hospitalization)
  Sender: FDA-Public Use
  Company Number: 2005149899

PATIENT
  Age: 81 Year
  Sex: Male

DRUGS (8)
  1. LYRICA [Suspect]
     Indication: NEURALGIA
     Dosage: 300 MG (150 MG, 2 IN 1 D), ORAL
     Route: 048
     Dates: start: 20050829, end: 20050915
  2. FUROSEMIDE [Concomitant]
  3. PLENDIL [Concomitant]
  4. LINATIL (ENALAPRIL MALEATE) [Concomitant]
  5. MAREVAN ^ORION^ (WARFARIN SODIUM) [Concomitant]
  6. APURIN (ALLOPURINOL) [Concomitant]
  7. DUREKAL (POTASSIUM CHLORIDE) [Concomitant]
  8. PANACOD (CODEINE PHOSPHATE, PARACETAMOL) [Concomitant]

REACTIONS (2)
  - TIC [None]
  - URINARY TRACT INFLAMMATION [None]
